FAERS Safety Report 6761243-5 (Version None)
Quarter: 2010Q2

REPORT INFORMATION
  Report Type: 
  Country: None (occurrence: None)
  Receive Date: 20100608
  Receipt Date: 20100601
  Transmission Date: 20101027
  Serious: Yes (Hospitalization)
  Sender: FDA-Public Use
  Company Number: PHHO2010BE01989

PATIENT
  Sex: Male
  Weight: 50.6 kg

DRUGS (3)
  1. CERTICAN [Suspect]
     Indication: HEART TRANSPLANT
     Dosage: 1.5 MG/DAY
     Route: 048
     Dates: start: 20080219
  2. CELLCEPT [Concomitant]
     Indication: HEART TRANSPLANT
  3. DETROL [Concomitant]

REACTIONS (9)
  - ABDOMINAL PAIN [None]
  - CARDIAC FAILURE [None]
  - COUGH [None]
  - DECREASED APPETITE [None]
  - DIARRHOEA [None]
  - EXERCISE TOLERANCE DECREASED [None]
  - FATIGUE [None]
  - GENERAL PHYSICAL HEALTH DETERIORATION [None]
  - MUSCLE ATROPHY [None]
